FAERS Safety Report 8036592-3 (Version None)
Quarter: 2012Q1

REPORT INFORMATION
  Report Type: 
  Country: None (occurrence: None)
  Receive Date: 20120111
  Receipt Date: 20120109
  Transmission Date: 20120608
  Serious: Yes (Other)
  Sender: FDA-Public Use
  Company Number: IT-PFIZER INC-2012005672

PATIENT
  Sex: Male

DRUGS (3)
  1. ZOLOFT [Suspect]
     Dosage: 75MG DAILY
     Dates: start: 20080101, end: 20090101
  2. ZOLOFT [Suspect]
     Dosage: 50MG
     Dates: start: 20010101, end: 20080101
  3. DIAZEPAM [Concomitant]
     Dosage: UNK

REACTIONS (1)
  - BASAL CELL CARCINOMA [None]
